FAERS Safety Report 4821954-5 (Version None)
Quarter: 2005Q4

REPORT INFORMATION
  Report Type: 
  Country: None (occurrence: None)
  Receive Date: 20051103
  Receipt Date: 20051019
  Transmission Date: 20060501
  Serious: Yes (Disabling)
  Sender: FDA-Public Use
  Company Number: DSA_27310_2005

PATIENT
  Age: 11 Month
  Sex: Male

DRUGS (6)
  1. ENALAPRIL MALEATE [Suspect]
     Dosage: 0.5 MG BID PO
     Route: 048
     Dates: start: 20051010, end: 20051012
  2. DOBUTREX [Concomitant]
  3. FRANDOL S [Concomitant]
  4. NITROGLYCERIN [Concomitant]
  5. MINOCYCLINE HCL [Concomitant]
  6. TARGOCID [Concomitant]

REACTIONS (2)
  - ANURIA [None]
  - RENAL IMPAIRMENT [None]
